FAERS Safety Report 8725467 (Version 2)
Quarter: 2016Q2

REPORT INFORMATION
  Report Type: Report from Study
  Country: BR (occurrence: BR)
  Receive Date: 20120815
  Receipt Date: 20160519
  Transmission Date: 20160815
  Serious: Yes (Hospitalization, Disabling, Other)
  Sender: FDA-Public Use
  Company Number: BR-ROCHE-1101730

PATIENT
  Sex: Female

DRUGS (12)
  1. FINASTERIDE. [Concomitant]
     Active Substance: FINASTERIDE
     Dosage: BRAND NAME: FINALOP
     Route: 065
  2. HYDROCORTISONE. [Concomitant]
     Active Substance: HYDROCORTISONE
     Indication: PREMEDICATION
     Route: 065
  3. MABTHERA [Suspect]
     Active Substance: RITUXIMAB
     Dosage: DAY 15?MOST RECENT DOSE ON 19/NOV/2015
     Route: 042
     Dates: start: 20120405
  4. PREDNISONE. [Concomitant]
     Active Substance: PREDNISONE
  5. LYRICA [Concomitant]
     Active Substance: PREGABALIN
  6. ENDOFOLIN [Concomitant]
     Active Substance: FOLIC ACID
  7. CELESTONE [Concomitant]
     Active Substance: BETAMETHASONE
  8. FLUCONAZOLE. [Concomitant]
     Active Substance: FLUCONAZOLE
  9. AZULFIDINE [Concomitant]
     Active Substance: SULFASALAZINE
  10. MABTHERA [Suspect]
     Active Substance: RITUXIMAB
     Indication: RHEUMATOID ARTHRITIS
     Dosage: DAY 1
     Route: 042
     Dates: start: 20120322
  11. ASPIRIN. [Concomitant]
     Active Substance: ASPIRIN
  12. METHOTREXATE [Concomitant]
     Active Substance: METHOTREXATE

REACTIONS (7)
  - Immobile [Unknown]
  - Urinary tract infection [Recovering/Resolving]
  - Speech disorder [Unknown]
  - Ill-defined disorder [Unknown]
  - Systemic lupus erythematosus [Unknown]
  - Blindness [Unknown]
  - Vasculitis [Unknown]
